FAERS Safety Report 7000591-0 (Version None)
Quarter: 2010Q3

REPORT INFORMATION
  Report Type: 
  Country: None (occurrence: None)
  Receive Date: 20100920
  Receipt Date: 20091002
  Transmission Date: 20110219
  Serious: No
  Sender: FDA-Public Use
  Company Number: US-ASTRAZENECA-2009SE17605

PATIENT
  Age: 60 Year
  Sex: Female

DRUGS (4)
  1. SEROQUEL [Suspect]
     Route: 048
  2. LYRICA [Suspect]
     Route: 048
  3. CYMBALTA [Suspect]
  4. REPLACEMENT THERAPY [Concomitant]

REACTIONS (4)
  - AUTONOMIC NERVOUS SYSTEM IMBALANCE [None]
  - FALL [None]
  - FATIGUE [None]
  - FEELING COLD [None]
